FAERS Safety Report 6606678-6 (Version None)
Quarter: 2010Q1

REPORT INFORMATION
  Report Type: 
  Country: None (occurrence: None)
  Receive Date: 20100226
  Receipt Date: 20100216
  Transmission Date: 20100710
  Serious: Yes (Other)
  Sender: FDA-Public Use
  Company Number: US-ABBOTT-10P-163-0626552-00

PATIENT
  Sex: Female
  Weight: 78.088 kg

DRUGS (5)
  1. HUMIRA [Suspect]
     Indication: PSORIASIS
     Route: 058
     Dates: start: 20030501, end: 20090914
  2. HUMIRA [Suspect]
     Indication: PSORIATIC ARTHROPATHY
  3. LYRICA [Concomitant]
     Indication: DRUG USE FOR UNKNOWN INDICATION
  4. PRILOSEC [Concomitant]
     Indication: DRUG USE FOR UNKNOWN INDICATION
  5. CELEXA [Concomitant]
     Indication: DEPRESSION

REACTIONS (3)
  - NECK INJURY [None]
  - PSORIASIS [None]
  - TRIGGER FINGER [None]
